FAERS Safety Report 4873873-6 (Version None)
Quarter: 2006Q1

REPORT INFORMATION
  Report Type: 
  Country: None (occurrence: None)
  Receive Date: 20060103
  Receipt Date: 20060103
  Transmission Date: 20060701
  Serious: Yes (Other)
  Sender: FDA-Public Use
  Company Number: None

PATIENT
  Age: 49 Year
  Sex: Female
  Weight: 49.4421 kg

DRUGS (1)
  1. BUPROPION HCL [Suspect]
     Indication: DEPRESSION
     Dosage: 1 TABLET  BID PO
     Route: 048
     Dates: start: 20051114, end: 20051202

REACTIONS (10)
  - CHEST PAIN [None]
  - CRYING [None]
  - DRUG EFFECT DECREASED [None]
  - FEELING ABNORMAL [None]
  - FLUID RETENTION [None]
  - HYPOVENTILATION [None]
  - IRRITABILITY [None]
  - MIGRAINE [None]
  - NAUSEA [None]
  - PALPITATIONS [None]
